FAERS Safety Report 6954942-3 (Version None)
Quarter: 2010Q3

REPORT INFORMATION
  Report Type: 
  Country: None (occurrence: None)
  Receive Date: 20100830
  Receipt Date: 20100825
  Transmission Date: 20110219
  Serious: Yes (Death, Other)
  Sender: FDA-Public Use
  Company Number: PHHY2010NL44926

PATIENT
  Sex: Male

DRUGS (13)
  1. ZOMETA [Suspect]
     Dosage: 4 MG, UNK
     Dates: start: 20090907
  2. ZOMETA [Suspect]
     Dosage: 4 MG, UNK
     Dates: start: 20091005
  3. ZOMETA [Suspect]
     Dosage: 4 MG, UNK
     Dates: start: 20091103
  4. ZOMETA [Suspect]
     Dosage: 4 MG, UNK
     Dates: start: 20091201
  5. ZOMETA [Suspect]
     Dosage: 4 MG, UNK
     Dates: start: 20091229
  6. ZOMETA [Suspect]
     Dosage: 4 MG, UNK
     Dates: start: 20100126
  7. ZOMETA [Suspect]
     Dosage: 4 MG, UNK
     Dates: start: 20100218
  8. ZOMETA [Suspect]
     Dosage: 4 MG, UNK
     Dates: start: 20100319
  9. ZOMETA [Suspect]
     Dosage: 4 MG, UNK
     Dates: start: 20100419
  10. ZOMETA [Suspect]
     Dosage: 4 MG, UNK
     Dates: start: 20100520
  11. ZOMETA [Suspect]
     Dosage: 4 MG, UNK
     Dates: start: 20100611
  12. ZOMETA [Suspect]
     Dosage: 4 MG, UNK
     Dates: start: 20100708
  13. ZOMETA [Suspect]
     Dosage: 4 MG, UNK
     Dates: start: 20100804

REACTIONS (2)
  - DEATH [None]
  - HAEMOGLOBIN DECREASED [None]
